FAERS Safety Report 7019648-3 (Version None)
Quarter: 2010Q3

REPORT INFORMATION
  Report Type: 
  Country: None (occurrence: None)
  Receive Date: 20100928
  Receipt Date: 20100920
  Transmission Date: 20110219
  Serious: Yes (Other)
  Sender: FDA-Public Use
  Company Number: PHHY2010DE62467

PATIENT
  Sex: Male

DRUGS (1)
  1. ACLASTA [Suspect]
     Dosage: 5 MG
     Route: 042
     Dates: start: 20100914

REACTIONS (9)
  - ABNORMAL SENSATION IN EYE [None]
  - BLOOD URINE PRESENT [None]
  - DYSURIA [None]
  - EYE DISORDER [None]
  - EYE PAIN [None]
  - OCULAR HYPERAEMIA [None]
  - RENAL PAIN [None]
  - SENSITIVITY OF TEETH [None]
  - TOOTHACHE [None]
